FAERS Safety Report 17760338 (Version 1)
Quarter: 2020Q2

REPORT INFORMATION
  Report Type: Report from Study
  Country: NL (occurrence: NL)
  Receive Date: 20200508
  Receipt Date: 20200508
  Transmission Date: 20200714
  Serious: Yes (Hospitalization)
  Sender: FDA-Public Use
  Company Number: NL-TEVA-2020-NL-1231940

PATIENT
  Age: 40 Year
  Sex: Female

DRUGS (3)
  1. MESALAZINE ORAAL [Suspect]
     Active Substance: MESALAMINE
     Indication: CROHN^S DISEASE
     Dosage: 4 GRAM DAILY;
     Route: 048
     Dates: start: 20200213, end: 20200214
  2. MESALAZINE ORAAL [Concomitant]
     Active Substance: MESALAMINE
     Dosage: 3 GRAM DAILY; THERAPY END DATE: ASKED BUT UNKNOWN
     Route: 048
     Dates: start: 19991115
  3. MESALAZINE KLYSMA [Concomitant]
     Dosage: 4 GRAM DAILY; THERAPY END DATE: ASKED BUT UNKNOWN
     Dates: start: 19991115

REACTIONS (4)
  - Diarrhoea [Recovered/Resolved]
  - Drug interaction [Unknown]
  - Pyrexia [Recovered/Resolved]
  - Palpitations [Recovered/Resolved]

NARRATIVE: CASE EVENT DATE: 20200214
